FAERS Safety Report 10164916 (Version 2)
Quarter: 2014Q4

REPORT INFORMATION
  Report Type: Spontaneous
  Country: US (occurrence: US)
  Receive Date: 20140510
  Receipt Date: 20141205
  Transmission Date: 20150528
  Serious: No
  Sender: FDA-Public Use
  Company Number: US-BRISTOL-MYERS SQUIBB COMPANY-20205993

PATIENT
  Age: 52 Year
  Sex: Female
  Weight: 81.63 kg

DRUGS (6)
  1. ALTACE [Concomitant]
     Active Substance: RAMIPRIL
  2. METFORMIN [Concomitant]
     Active Substance: METFORMIN HYDROCHLORIDE
     Dosage: 500MG (2/1/D)
  3. CELEXA [Concomitant]
     Active Substance: CITALOPRAM HYDROBROMIDE
  4. ACEPHEN [Concomitant]
     Active Substance: ACETAMINOPHEN
  5. SINGULAIR [Concomitant]
     Active Substance: MONTELUKAST SODIUM
  6. BYDUREON [Suspect]
     Active Substance: EXENATIDE
     Indication: TYPE 2 DIABETES MELLITUS
     Route: 058
     Dates: start: 20140107

REACTIONS (6)
  - Injection site nodule [Not Recovered/Not Resolved]
  - Underdose [Unknown]
  - Injection site erythema [Unknown]
  - Injection site pruritus [Not Recovered/Not Resolved]
  - Product quality issue [Unknown]
  - Injection site haematoma [Recovering/Resolving]
